FAERS Safety Report 22330607 (Version 1)
Quarter: 2023Q2

REPORT INFORMATION
  Report Type: Spontaneous
  Country: US (occurrence: US)
  Receive Date: 20230517
  Receipt Date: 20230517
  Transmission Date: 20230722
  Serious: Yes (Hospitalization)
  Sender: FDA-Public Use
  Company Number: US-CTI BIOPHARMA-2023US03614

PATIENT

DRUGS (15)
  1. VONJO [Suspect]
     Active Substance: PACRITINIB
     Indication: Myeloproliferative neoplasm
     Dosage: 200 MG, QAM
     Route: 048
     Dates: start: 20221130
  2. VONJO [Suspect]
     Active Substance: PACRITINIB
     Dosage: 100 MG, QPM
     Route: 048
     Dates: start: 20221130
  3. ALLOPURINOL [Concomitant]
     Active Substance: ALLOPURINOL
  4. AMIODARONE [Concomitant]
     Active Substance: AMIODARONE
  5. ELIQUIS [Concomitant]
     Active Substance: APIXABAN
  6. JARDIANCE [Concomitant]
     Active Substance: EMPAGLIFLOZIN
  7. KLOR-CON M10 [Concomitant]
     Active Substance: POTASSIUM CHLORIDE
  8. PRAVASTATIN [Concomitant]
     Active Substance: PRAVASTATIN
  9. LEVOTHYROXINE [Concomitant]
     Active Substance: LEVOTHYROXINE
  10. METOPROLOL TARTRATE [Concomitant]
     Active Substance: METOPROLOL TARTRATE
  11. PANTOPRAZOLE [Concomitant]
     Active Substance: PANTOPRAZOLE
  12. PREDNISONE [Concomitant]
     Active Substance: PREDNISONE
  13. TORSEMIDE [Concomitant]
     Active Substance: TORSEMIDE
  14. CHOLECALCIFEROL [Concomitant]
     Active Substance: CHOLECALCIFEROL
  15. ROSUVASTATIN [Concomitant]
     Active Substance: ROSUVASTATIN

REACTIONS (7)
  - Atrial fibrillation [Unknown]
  - Fluid retention [Unknown]
  - Full blood count abnormal [Unknown]
  - Transfusion [Unknown]
  - Anxiety [Unknown]
  - Confusional state [Unknown]
  - Dyspnoea [Unknown]
